FAERS Safety Report 25768760 (Version 1)
Quarter: 2025Q3

REPORT INFORMATION
  Report Type: Spontaneous
  Country: US (occurrence: US)
  Receive Date: 20250905
  Receipt Date: 20250905
  Transmission Date: 20251021
  Serious: No
  Sender: ALNYLAM PHARMACEUTICALS
  Company Number: US-ALNYLAM PHARMACEUTICALS, INC.-ALN-2025-005285

PATIENT

DRUGS (3)
  1. AMVUTTRA [Suspect]
     Active Substance: VUTRISIRAN
     Indication: Cardiac amyloidosis
     Route: 065
     Dates: start: 202506, end: 202506
  2. TAFAMIDIS [Concomitant]
     Active Substance: TAFAMIDIS
     Indication: Acquired ATTR amyloidosis
     Route: 065
     Dates: start: 202410
  3. VITAMIN A [Concomitant]
     Active Substance: VITAMIN A
     Indication: Product used for unknown indication
     Route: 065

REACTIONS (1)
  - Myopia [Unknown]
